FAERS Safety Report 11992073 (Version 1)
Quarter: 2016Q1

REPORT INFORMATION
  Report Type: Spontaneous
  Country: US (occurrence: US)
  Receive Date: 20160203
  Receipt Date: 20160203
  Transmission Date: 20160526
  Serious: No
  Sender: FDA-Public Use
  Company Number: US-JNJFOC-20151208074

PATIENT
  Age: 76 Year
  Sex: Female
  Weight: 90.27 kg

DRUGS (2)
  1. TYLENOL 8 HR ARTHRITIS PAIN [Suspect]
     Active Substance: ACETAMINOPHEN
     Route: 048
  2. TYLENOL 8 HR ARTHRITIS PAIN [Suspect]
     Active Substance: ACETAMINOPHEN
     Indication: ARTHRALGIA
     Dosage: TOOK 2 CAPLETS ON 05-DEC-2015 AND 2 CAPLETS ON 08-DEC-2015.
     Route: 048
     Dates: start: 20151205

REACTIONS (7)
  - Drug ineffective [Unknown]
  - Off label use [Unknown]
  - Product packaging issue [Unknown]
  - Underdose [Unknown]
  - Inappropriate schedule of drug administration [Unknown]
  - Arthralgia [Unknown]
  - Pain [Unknown]
